FAERS Safety Report 6189197-3 (Version None)
Quarter: 2009Q2

REPORT INFORMATION
  Report Type: 
  Country: None (occurrence: None)
  Receive Date: 20090513
  Receipt Date: 20090507
  Transmission Date: 20091009
  Serious: Yes (Other)
  Sender: FDA-Public Use
  Company Number: US-B.I. PHARMACEUTICALS,INC./RIDGEFIELD-2009-BP-05667BP

PATIENT
  Sex: Female

DRUGS (11)
  1. MIRAPEX [Suspect]
  2. REQUIP XL [Suspect]
     Indication: RESTLESS LEGS SYNDROME
     Route: 048
  3. ROPINIROLE [Suspect]
     Indication: RESTLESS LEGS SYNDROME
     Dosage: 3MG
     Route: 048
     Dates: start: 20080101, end: 20081101
  4. ROPINIROLE [Suspect]
     Route: 048
  5. LYRICA [Suspect]
  6. ADVAIR HFA [Concomitant]
     Indication: ASTHMA
  7. PROZAC [Concomitant]
     Indication: DEPRESSION
  8. PERCOCET [Concomitant]
  9. FENTANYL [Concomitant]
  10. PREMARIN [Concomitant]
  11. FOLIC ACID [Concomitant]

REACTIONS (6)
  - DIZZINESS [None]
  - DRUG INTOLERANCE [None]
  - FALL [None]
  - FEELING ABNORMAL [None]
  - SUDDEN ONSET OF SLEEP [None]
  - SWELLING [None]
